FAERS Safety Report 15029106 (Version 2)
Quarter: 2018Q3

REPORT INFORMATION
  Report Type: Spontaneous
  Country: DE (occurrence: DE)
  Receive Date: 20180619
  Receipt Date: 20180710
  Transmission Date: 20181010
  Serious: Yes (Other)
  Sender: FDA-Public Use
  Company Number: DE-PFIZER INC-2018242229

PATIENT
  Age: 65 Year
  Sex: Female

DRUGS (6)
  1. FENTANYL. [Concomitant]
     Active Substance: FENTANYL
     Dosage: UNK
  2. XGEVA [Concomitant]
     Active Substance: DENOSUMAB
     Dosage: UNK
  3. NOVALGIN (METAMIZOLE SODIUM) [Concomitant]
     Active Substance: METAMIZOLE SODIUM
     Dosage: UNK
  4. IBRANCE [Suspect]
     Active Substance: PALBOCICLIB
     Indication: BREAST CANCER METASTATIC
     Dosage: 125 MG, CYCLIC(ONCE DAILY IN CALENDAR WEEKS 18?20 WITH PAUSE IN WEEK 21)
     Route: 048
     Dates: end: 20180605
  5. EFFENTORA [Concomitant]
     Active Substance: FENTANYL CITRATE
     Dosage: UNK
     Route: 002
  6. FULVESTRANT. [Concomitant]
     Active Substance: FULVESTRANT
     Dosage: UNK

REACTIONS (1)
  - Hepatic enzyme increased [Recovered/Resolved]

NARRATIVE: CASE EVENT DATE: 20180605
